FAERS Safety Report 9788433 (Version 1)
Quarter: 2013Q4

REPORT INFORMATION
  Report Type: Spontaneous
  Country: CL (occurrence: CL)
  Receive Date: 20131230
  Receipt Date: 20131230
  Transmission Date: 20140711
  Serious: Yes (Other)
  Sender: FDA-Public Use
  Company Number: CL-PFIZER INC-2013370334

PATIENT
  Sex: Male

DRUGS (1)
  1. XALATAN [Suspect]
     Dosage: 1 DF, 1X/DAY
     Dates: start: 2007, end: 2010

REACTIONS (1)
  - Cataract [Recovered/Resolved]
